FAERS Safety Report 10519006 (Version 2)
Quarter: 2015Q1

REPORT INFORMATION
  Report Type: Spontaneous
  Country: US (occurrence: US)
  Receive Date: 20141015
  Receipt Date: 20150219
  Transmission Date: 20150720
  Serious: Yes (Hospitalization, Other)
  Sender: FDA-Public Use
  Company Number: US-GLAXOSMITHKLINE-US2014GSK005290

PATIENT
  Sex: Female

DRUGS (10)
  1. CALCIUM [Concomitant]
     Active Substance: CALCIUM
  2. OXYBUTYNIN [Concomitant]
     Active Substance: OXYBUTYNIN
  3. XANAX [Concomitant]
     Active Substance: ALPRAZOLAM
  4. ATENOLOL. [Concomitant]
     Active Substance: ATENOLOL
  5. MAGNESIUM [Concomitant]
     Active Substance: MAGNESIUM
  6. ADVAIR HFA [Suspect]
     Active Substance: FLUTICASONE PROPIONATE\SALMETEROL XINAFOATE
     Indication: CHRONIC OBSTRUCTIVE PULMONARY DISEASE
     Dosage: 1 DF, BID
     Route: 055
  7. ADDERALL [Concomitant]
     Active Substance: AMPHETAMINE ASPARTATE\AMPHETAMINE SULFATE\DEXTROAMPHETAMINE SACCHARATE\DEXTROAMPHETAMINE SULFATE
  8. ZINC [Concomitant]
     Active Substance: ZINC\ZINC CHLORIDE
  9. LOVASTATIN. [Concomitant]
     Active Substance: LOVASTATIN
  10. LEVOTHYROXINE [Concomitant]
     Active Substance: LEVOTHYROXINE

REACTIONS (3)
  - Loss of consciousness [Unknown]
  - Fall [Unknown]
  - Surgery [Unknown]
